FAERS Safety Report 12447593 (Version 1)
Quarter: 2016Q2

REPORT INFORMATION
  Report Type: Spontaneous
  Country: US (occurrence: None)
  Receive Date: 20160607
  Receipt Date: 20160607
  Transmission Date: 20160815
  Serious: Yes (Hospitalization)
  Sender: FDA-Public Use
  Company Number: None

PATIENT
  Age: 46 Year
  Sex: Female
  Weight: 83.51 kg

DRUGS (14)
  1. FENTANYL. [Concomitant]
     Active Substance: FENTANYL
  2. FISH OIL [Concomitant]
     Active Substance: FISH OIL
  3. NEURONTIN [Concomitant]
     Active Substance: GABAPENTIN
  4. ALEVE [Concomitant]
     Active Substance: NAPROXEN SODIUM
  5. CYANOCOBALAMINE [Concomitant]
     Active Substance: CYANOCOBALAMIN
  6. TYLENOL [Concomitant]
     Active Substance: ACETAMINOPHEN
  7. KLOR-CON [Concomitant]
     Active Substance: POTASSIUM CHLORIDE
  8. OXYCODONE [Concomitant]
     Active Substance: OXYCODONE
  9. MAGOXIDE [Concomitant]
  10. VITAMIN D [Concomitant]
     Active Substance: CHOLECALCIFEROL
  11. NIVOLUMAB [Suspect]
     Active Substance: NIVOLUMAB
     Indication: BREAST CANCER
     Route: 042
     Dates: start: 20160404, end: 20160523
  12. CALCIUM CARBONATE. [Concomitant]
     Active Substance: CALCIUM CARBONATE
  13. MULTIVITAMIN [Concomitant]
     Active Substance: VITAMINS
  14. VITAMIN B12 [Concomitant]
     Active Substance: CYANOCOBALAMIN

REACTIONS (2)
  - Dyspnoea [None]
  - Aspartate aminotransferase increased [None]

NARRATIVE: CASE EVENT DATE: 20160606
